FAERS Safety Report 8012407-4 (Version None)
Quarter: 2011Q4

REPORT INFORMATION
  Report Type: 
  Country: None (occurrence: None)
  Receive Date: 20111228
  Receipt Date: 20111219
  Transmission Date: 20120403
  Serious: Yes (Death)
  Sender: FDA-Public Use
  Company Number: US-PFIZER INC-2011309856

PATIENT
  Age: 74 Year
  Sex: Female

DRUGS (9)
  1. SIMVASTATIN [Suspect]
  2. LISINOPRIL [Suspect]
  3. POTASSIUM CHLORIDE [Suspect]
  4. CARVEDILOL [Suspect]
  5. CLOPIDOGREL [Suspect]
  6. LEVOTHYROXINE SODIUM [Suspect]
  7. BUMETANIDE [Suspect]
  8. TEMAZEPAM [Suspect]
  9. RISPERIDONE [Suspect]

REACTIONS (2)
  - TOXICITY TO VARIOUS AGENTS [None]
  - COMPLETED SUICIDE [None]
